FAERS Safety Report 13382319 (Version 1)
Quarter: 2017Q1

REPORT INFORMATION
  Report Type: Report from Study
  Country: BR (occurrence: BR)
  Receive Date: 20170329
  Receipt Date: 20170329
  Transmission Date: 20170429
  Serious: Yes (Hospitalization, Other)
  Sender: FDA-Public Use
  Company Number: PHHY2017BR046488

PATIENT
  Age: 91 Year
  Sex: Male

DRUGS (1)
  1. EXELON PATCH [Suspect]
     Active Substance: RIVASTIGMINE
     Indication: DEMENTIA
     Route: 062

REACTIONS (4)
  - Nervous system disorder [Unknown]
  - Pneumonia [Unknown]
  - Facial paralysis [Unknown]
  - Dysphagia [Unknown]
